FAERS Safety Report 23433037 (Version 1)
Quarter: 2024Q1

REPORT INFORMATION
  Report Type: Spontaneous
  Country: US (occurrence: None)
  Receive Date: 20240123
  Receipt Date: 20240123
  Transmission Date: 20240410
  Serious: Yes (Other)
  Sender: FDA-Public Use
  Company Number: None

PATIENT
  Age: 39 Year
  Sex: Female

DRUGS (10)
  1. SKYRIZI [Suspect]
     Active Substance: RISANKIZUMAB-RZAA
     Indication: Crohn^s disease
     Dosage: 360 MG/2.4ML  SUBCUTANEOUS?? INJECT 360MG SUBCUTANEOUSLY EVERY 8 WEEKS AS DIRECTED
     Route: 058
  2. SKYRIZI [Suspect]
     Active Substance: RISANKIZUMAB-RZAA
     Dosage: OTHER FREQUENCY : EVERY 8 WEEKS;?
     Route: 058
  3. CEPHALEXIN [Concomitant]
  4. CETIRIZINE [Concomitant]
     Active Substance: CETIRIZINE HYDROCHLORIDE
  5. CYANOCOBALAM [Concomitant]
  6. PEPCID AC [Concomitant]
     Active Substance: FAMOTIDINE
  7. PREDNISONE [Concomitant]
     Active Substance: PREDNISONE
  8. PRILOSEC OTC [Concomitant]
     Active Substance: OMEPRAZOLE MAGNESIUM
  9. VITAMIN C CHW [Concomitant]
  10. VITAMIN D [Concomitant]
     Active Substance: VITAMIN D NOS

REACTIONS (6)
  - Upper respiratory tract infection [None]
  - Influenza [None]
  - Chest pain [None]
  - Sinusitis [None]
  - Nasal dryness [None]
  - Blood pressure increased [None]

NARRATIVE: CASE EVENT DATE: 20240101
